FAERS Safety Report 24124466 (Version 2)
Quarter: 2024Q3

REPORT INFORMATION
  Report Type: Spontaneous
  Country: US (occurrence: US)
  Receive Date: 20240723
  Receipt Date: 20240819
  Transmission Date: 20241016
  Serious: Yes (Hospitalization)
  Sender: TEVA
  Company Number: US-TEVA-VS-3220455

PATIENT
  Sex: Male

DRUGS (4)
  1. HYDRALAZINE [Suspect]
     Active Substance: HYDRALAZINE HYDROCHLORIDE
     Indication: Hypertension
     Route: 065
  2. Axitinitib [Concomitant]
     Indication: Metastatic renal cell carcinoma
     Dosage: RECEIVED 3 CYCLES
     Route: 065
  3. PEMBROLIZUMAB [Suspect]
     Active Substance: PEMBROLIZUMAB
     Indication: Metastatic renal cell carcinoma
     Dosage: RECEIVED 3 CYCLES
     Route: 065
  4. CABOZANTINIB [Concomitant]
     Active Substance: CABOZANTINIB
     Indication: Metastatic renal cell carcinoma
     Route: 065

REACTIONS (1)
  - Lupus nephritis [Recovered/Resolved]
